FAERS Safety Report 18238526 (Version 1)
Quarter: 2020Q3

REPORT INFORMATION
  Report Type: Spontaneous
  Country: JP (occurrence: JP)
  Receive Date: 20200907
  Receipt Date: 20200907
  Transmission Date: 20201103
  Serious: Yes (Other)
  Sender: FDA-Public Use
  Company Number: JP-ASTRAZENECA-2018SE61265

PATIENT
  Age: 38 Year
  Sex: Female

DRUGS (10)
  1. ARIPIPRAZOLE. [Suspect]
     Active Substance: ARIPIPRAZOLE
     Indication: BIPOLAR DISORDER
     Route: 048
     Dates: start: 20180426
  2. RISPERIDONE. [Concomitant]
     Active Substance: RISPERIDONE
     Route: 048
  3. BIPRESSO (QUETIAPINE FUMARATE) [Suspect]
     Active Substance: QUETIAPINE FUMARATE
     Indication: BIPOLAR DISORDER
     Route: 048
     Dates: start: 20180318, end: 20180410
  4. ARIPIPRAZOLE. [Suspect]
     Active Substance: ARIPIPRAZOLE
     Indication: BIPOLAR DISORDER
     Route: 048
     Dates: start: 20180411, end: 20180425
  5. FLUNITRAZEPAM [Concomitant]
     Active Substance: FLUNITRAZEPAM
  6. FLUNITRAZEPAM [Concomitant]
     Active Substance: FLUNITRAZEPAM
     Dosage: 4 MG
     Dates: start: 201704
  7. DEPAKENE?R [Concomitant]
     Active Substance: VALPROATE SODIUM
  8. ABILIFY [Concomitant]
     Active Substance: ARIPIPRAZOLE
  9. TASMOLIN [Concomitant]
     Active Substance: BIPERIDEN
  10. BIPRESSO (QUETIAPINE FUMARATE) [Suspect]
     Active Substance: QUETIAPINE FUMARATE
     Indication: BIPOLAR DISORDER
     Route: 048
     Dates: start: 20180426

REACTIONS (5)
  - Anterograde amnesia [Recovered/Resolved]
  - Menstruation delayed [Recovered/Resolved]
  - Insomnia [Unknown]
  - Hyperprolactinaemia [Recovered/Resolved]
  - Off label use [Unknown]

NARRATIVE: CASE EVENT DATE: 20180318
